FAERS Safety Report 24065578 (Version 1)
Quarter: 2024Q3

REPORT INFORMATION
  Report Type: Spontaneous
  Country: CN (occurrence: CN)
  Receive Date: 20240709
  Receipt Date: 20240709
  Transmission Date: 20241016
  Serious: Yes (Hospitalization)
  Sender: BAXTER
  Company Number: None

PATIENT
  Age: 71 Year
  Sex: Male
  Weight: 70 kg

DRUGS (3)
  1. CYCLOPHOSPHAMIDE [Suspect]
     Active Substance: CYCLOPHOSPHAMIDE
     Indication: Vasculitis
     Dosage: 0.4 G, ONE TIME IN ONE DAY, DILUTED WITH 250 ML OF 0.9% SODIUM CHLORIDE, IMMEDIATELY
     Route: 041
     Dates: start: 20240614, end: 20240614
  2. CYCLOPHOSPHAMIDE [Suspect]
     Active Substance: CYCLOPHOSPHAMIDE
     Indication: Immunosuppression
  3. SODIUM CHLORIDE [Suspect]
     Active Substance: SODIUM CHLORIDE
     Indication: Medication dilution
     Dosage: 250 ML, ONE TIME IN ONE DAY, STRENGTH: 0.9%, USED TO DILUTE 0.4 G OF CYCLOPHOSPHAMIDE, IMMEDIATELY
     Route: 041
     Dates: start: 20240614, end: 20240614

REACTIONS (5)
  - Photosensitivity reaction [Recovering/Resolving]
  - Pruritus [Recovering/Resolving]
  - Hepatic function abnormal [Recovering/Resolving]
  - Transaminases increased [Recovering/Resolving]
  - Asthenia [Recovering/Resolving]

NARRATIVE: CASE EVENT DATE: 20240614
